FAERS Safety Report 7005949-1 (Version None)
Quarter: 2010Q3

REPORT INFORMATION
  Report Type: 
  Country: None (occurrence: None)
  Receive Date: 20100921
  Receipt Date: 20100908
  Transmission Date: 20110219
  Serious: No
  Sender: FDA-Public Use
  Company Number: US-ELI_LILLY_AND_COMPANY-US201006004109

PATIENT
  Sex: Female

DRUGS (7)
  1. STRATTERA [Suspect]
     Indication: ATTENTION DEFICIT/HYPERACTIVITY DISORDER
     Dosage: 10 MG, UNK
     Dates: start: 20100505
  2. STRATTERA [Suspect]
     Dosage: 18 MG, UNK
     Dates: end: 20100609
  3. XANAX [Concomitant]
     Indication: MENOPAUSAL SYMPTOMS
     Dosage: 4 D/F, UNK
     Dates: start: 20100506
  4. ESTROGEN NOS [Concomitant]
     Indication: MOOD SWINGS
  5. OTHER ANALGESICS AND ANTIPYRETICS [Concomitant]
     Indication: BACK PAIN
     Route: 050
  6. FLUOXETINE (R-FLUOXETINE) [Concomitant]
     Indication: PANIC ATTACK
     Dosage: 20 MG, UNK
     Dates: end: 20100505
  7. FLUOXETINE (R-FLUOXETINE) [Concomitant]
     Dosage: 40 MG, UNK
     Dates: start: 20100506, end: 20100601

REACTIONS (1)
  - DRUG INEFFECTIVE [None]
